FAERS Safety Report 6913414-2 (Version None)
Quarter: 2010Q3

REPORT INFORMATION
  Report Type: 
  Country: None (occurrence: None)
  Receive Date: 20100805
  Receipt Date: 20100805
  Transmission Date: 20110219
  Serious: Yes (Hospitalization)
  Sender: FDA-Public Use
  Company Number: None

PATIENT
  Age: 71 Year
  Sex: Female
  Weight: 63.5036 kg

DRUGS (5)
  1. TYLENOL-500 [Suspect]
     Indication: HEADACHE
     Dosage: -5G OVER -24 HRS. PO
     Route: 048
  2. TYLENOL-500 [Suspect]
     Indication: NAUSEA
     Dosage: -5G OVER -24 HRS. PO
     Route: 048
  3. TYLENOL-500 [Suspect]
     Indication: PYREXIA
     Dosage: -5G OVER -24 HRS. PO
     Route: 048
  4. TYLENOL-500 [Suspect]
     Indication: VOMITING
     Dosage: -5G OVER -24 HRS. PO
     Route: 048
  5. SIMVASTATIN [Concomitant]

REACTIONS (3)
  - DEHYDRATION [None]
  - INCORRECT DOSE ADMINISTERED [None]
  - MEDICATION ERROR [None]
